FAERS Safety Report 7270116-3 (Version None)
Quarter: 2011Q1

REPORT INFORMATION
  Report Type: 
  Country: None (occurrence: None)
  Receive Date: 20110125
  Receipt Date: 20110125
  Transmission Date: 20110831
  Serious: Yes (Other)
  Sender: FDA-Public Use
  Company Number: None

PATIENT
  Age: 63 Year
  Sex: Female
  Weight: 79.3795 kg

DRUGS (4)
  1. OMNISCAN [Suspect]
     Indication: SARCOIDOSIS
     Dates: start: 20101210, end: 20101210
  2. OMNISCAN [Suspect]
     Indication: NUCLEAR MAGNETIC RESONANCE IMAGING
     Dates: start: 20101210, end: 20101210
  3. OMNISCAN [Suspect]
     Indication: SARCOIDOSIS
     Dates: start: 20110104, end: 20110104
  4. OMNISCAN [Suspect]
     Indication: NUCLEAR MAGNETIC RESONANCE IMAGING
     Dates: start: 20110104, end: 20110104

REACTIONS (2)
  - DYSGEUSIA [None]
  - AGEUSIA [None]
